FAERS Safety Report 8922113 (Version 2)
Quarter: 2012Q4

REPORT INFORMATION
  Report Type: 
  Country: CA (occurrence: CA)
  Receive Date: 20121123
  Receipt Date: 20121210
  Transmission Date: 20130627
  Serious: Yes (Other)
  Sender: FDA-Public Use
  Company Number: PHHY2012CA105298

PATIENT
  Sex: Female

DRUGS (2)
  1. TASIGNA [Suspect]
     Indication: CHRONIC MYELOID LEUKAEMIA
     Dosage: 300 mg, BID
     Route: 048
     Dates: start: 20121029, end: 201211
  2. TASIGNA [Suspect]
     Dosage: UNK
     Dates: end: 201211

REACTIONS (5)
  - Fatigue [Unknown]
  - Electrocardiogram QT prolonged [Unknown]
  - Palpitations [Unknown]
  - Drug intolerance [Unknown]
  - Tinnitus [Unknown]
